FAERS Safety Report 20198473 (Version 1)
Quarter: 2021Q4

REPORT INFORMATION
  Report Type: Spontaneous
  Country: GB (occurrence: GB)
  Receive Date: 20211217
  Receipt Date: 20211217
  Transmission Date: 20220303
  Serious: Yes (Other)
  Sender: FDA-Public Use
  Company Number: None

PATIENT
  Age: 44 Year
  Sex: Female
  Weight: 70 kg

DRUGS (3)
  1. MIRTAZAPINE [Suspect]
     Active Substance: MIRTAZAPINE
     Indication: Ill-defined disorder
     Dosage: 7.5 MG
     Route: 048
     Dates: start: 20210511, end: 20210514
  2. MIRTAZAPINE [Suspect]
     Active Substance: MIRTAZAPINE
     Indication: Antidepressant therapy
  3. CITALOPRAM [Concomitant]
     Active Substance: CITALOPRAM HYDROBROMIDE
     Indication: Ill-defined disorder
     Dosage: 5 DAYS OF 10MG AFTER 2 MONTHS OF 20MG

REACTIONS (4)
  - Anger [Unknown]
  - Anger [Unknown]
  - Agitation [Unknown]
  - Feeling of despair [Unknown]

NARRATIVE: CASE EVENT DATE: 20210512
